FAERS Safety Report 18715896 (Version 1)
Quarter: 2021Q1

REPORT INFORMATION
  Report Type: Spontaneous
  Country: US (occurrence: US)
  Receive Date: 20210108
  Receipt Date: 20210108
  Transmission Date: 20210419
  Serious: No
  Sender: FDA-Public Use
  Company Number: US-009507513-2012USA013623

PATIENT
  Age: 50 Year
  Sex: Female

DRUGS (1)
  1. CUBICIN [Suspect]
     Active Substance: DAPTOMYCIN
     Indication: ENTEROCOCCAL INFECTION
     Dosage: DAILY FOR A TOTAL OF THREE WEEKS
     Route: 033

REACTIONS (2)
  - Product use issue [Unknown]
  - Product use in unapproved indication [Unknown]
